FAERS Safety Report 12578186 (Version 3)
Quarter: 2016Q3

REPORT INFORMATION
  Report Type: Spontaneous
  Country: US (occurrence: US)
  Receive Date: 20160721
  Receipt Date: 20160915
  Transmission Date: 20161109
  Serious: Yes (Other)
  Sender: FDA-Public Use
  Company Number: US-TEVA-672371USA

PATIENT
  Age: 25 Year
  Sex: Female

DRUGS (2)
  1. ZECUITY [Suspect]
     Active Substance: SUMATRIPTAN SUCCINATE
     Indication: HEADACHE
     Dosage: /4 HOURS
     Route: 062
     Dates: start: 201604, end: 201604
  2. ZECUITY [Suspect]
     Active Substance: SUMATRIPTAN SUCCINATE
     Route: 062
     Dates: start: 201605, end: 201605

REACTIONS (13)
  - Application site burn [Recovered/Resolved]
  - Product physical issue [Unknown]
  - Application site paraesthesia [Recovered/Resolved]
  - Application site discomfort [Recovered/Resolved]
  - Application site urticaria [Recovered/Resolved]
  - Application site inflammation [Recovered/Resolved]
  - Skin disorder [Recovered/Resolved]
  - Application site pain [Recovered/Resolved]
  - Application site erythema [Recovered/Resolved]
  - Product leakage [Unknown]
  - Application site scab [Recovered/Resolved]
  - Application site discolouration [Recovered/Resolved]
  - Application site irritation [Recovered/Resolved]

NARRATIVE: CASE EVENT DATE: 201605
